FAERS Safety Report 10511118 (Version 1)
Quarter: 2014Q4

REPORT INFORMATION
  Report Type: Spontaneous
  Country: US (occurrence: None)
  Receive Date: 20141009
  Receipt Date: 20141009
  Transmission Date: 20150528
  Serious: Yes (Hospitalization)
  Sender: FDA-Public Use
  Company Number: None

PATIENT
  Age: 64 Year
  Sex: Female

DRUGS (1)
  1. GATTEX [Suspect]
     Active Substance: TEDUGLUTIDE\WATER
     Indication: MALABSORPTION
     Dosage: 0.225 ML  DAILY  SUBCUTANEOUSLY
     Route: 058
     Dates: start: 20140710, end: 20140924

REACTIONS (2)
  - Blood potassium decreased [None]
  - Blood calcium decreased [None]

NARRATIVE: CASE EVENT DATE: 20140924
